FAERS Safety Report 5856764-3 (Version None)
Quarter: 2008Q3

REPORT INFORMATION
  Report Type: 
  Country: None (occurrence: None)
  Receive Date: 20080825
  Receipt Date: 20080818
  Transmission Date: 20090109
  Serious: Yes (Hospitalization)
  Sender: FDA-Public Use
  Company Number: FR-AVENTIS-200813051FR

PATIENT
  Age: 61 Year
  Sex: Female

DRUGS (9)
  1. FLAGYL [Suspect]
     Route: 048
     Dates: start: 20080506, end: 20080513
  2. CIFLOX                             /00697201/ [Suspect]
     Route: 042
     Dates: start: 20080506, end: 20080513
  3. CORTANCYL [Concomitant]
     Indication: RHEUMATOID ARTHRITIS
     Route: 048
     Dates: end: 20080506
  4. CORTANCYL [Concomitant]
     Route: 048
     Dates: start: 20080507
  5. TRANDATE [Concomitant]
     Route: 048
     Dates: end: 20080506
  6. TRANDATE [Concomitant]
     Route: 048
     Dates: start: 20080509
  7. LOSARTAN POTASSIUM AND HYDROCHLOROTHIAZIDE [Concomitant]
     Route: 048
     Dates: end: 20080506
  8. LOSARTAN POTASSIUM AND HYDROCHLOROTHIAZIDE [Concomitant]
     Route: 048
     Dates: start: 20080530
  9. FUROSEMIDE [Concomitant]
     Route: 048

REACTIONS (1)
  - TOXIC SKIN ERUPTION [None]
